FAERS Safety Report 5767685-9 (Version None)
Quarter: 2008Q2

REPORT INFORMATION
  Report Type: 
  Country: None (occurrence: None)
  Receive Date: 20080609
  Receipt Date: 20080527
  Transmission Date: 20081010
  Serious: Yes (Death, Hospitalization)
  Sender: FDA-Public Use
  Company Number: 2008AL005975

PATIENT
  Age: 76 Year
  Sex: Male
  Weight: 86.1834 kg

DRUGS (17)
  1. DIGOXIN [Suspect]
     Indication: CARDIAC DISORDER
     Dosage: 0.125 MG ORAL
     Route: 048
  2. AMIODARONE HCL [Concomitant]
  3. COREG [Concomitant]
  4. CRESTOR [Concomitant]
  5. FUROSEMIDE [Concomitant]
  6. LISINOPRIL [Concomitant]
  7. MEXILETINE HYDROCHLORIDE [Concomitant]
  8. PROTONIX [Concomitant]
  9. HYDRALAZINE HCL [Concomitant]
  10. ZETIA [Concomitant]
  11. ISOSORB [Concomitant]
  12. POTASSIUM CHLORIDE [Concomitant]
  13. APIRIVA INHALER [Concomitant]
  14. NAXONEX [Concomitant]
  15. METOLACONE [Concomitant]
  16. ASPIRIN [Concomitant]
  17. AZO [Concomitant]

REACTIONS (7)
  - ANOREXIA [None]
  - ASTHENIA [None]
  - HEART RATE INCREASED [None]
  - NAUSEA [None]
  - RENAL FAILURE [None]
  - RETCHING [None]
  - VOMITING [None]
